FAERS Safety Report 19452998 (Version 1)
Quarter: 2021Q2

REPORT INFORMATION
  Report Type: Spontaneous
  Country: JP (occurrence: JP)
  Receive Date: 20210623
  Receipt Date: 20210623
  Transmission Date: 20210717
  Serious: Yes (Other)
  Sender: FDA-Public Use
  Company Number: NVSJ2021JP009607

PATIENT
  Sex: Female

DRUGS (1)
  1. IMUSERA [Suspect]
     Active Substance: FINGOLIMOD HYDROCHLORIDE
     Indication: MULTIPLE SCLEROSIS RELAPSE PROPHYLAXIS
     Dosage: UNK
     Route: 048

REACTIONS (8)
  - Liver disorder [Unknown]
  - Secondary progressive multiple sclerosis [Unknown]
  - Lymphocyte count decreased [Unknown]
  - Malaise [Unknown]
  - Expanded disability status scale score increased [Unknown]
  - Gait disturbance [Unknown]
  - Fall [Unknown]
  - JC polyomavirus test positive [Unknown]

NARRATIVE: CASE EVENT DATE: 202006
